FAERS Safety Report 4777979-1 (Version None)
Quarter: 2005Q3

REPORT INFORMATION
  Report Type: 
  Country: None (occurrence: None)
  Receive Date: 20050922
  Receipt Date: 20050909
  Transmission Date: 20060218
  Serious: No
  Sender: FDA-Public Use
  Company Number: 2005BI016040

PATIENT
  Age: 65 Year
  Sex: Female
  Weight: 54.8852 kg

DRUGS (3)
  1. AMEVIVE [Suspect]
     Indication: PSORIASIS
     Dosage: 15 MG, IM
     Route: 030
     Dates: start: 20031210, end: 20040211
  2. PRAVACHOL [Concomitant]
  3. PREMPRO [Concomitant]

REACTIONS (5)
  - DRUG ERUPTION [None]
  - ERYTHEMA MULTIFORME [None]
  - MORPHOEA [None]
  - SKIN BURNING SENSATION [None]
  - SKIN DISCOLOURATION [None]
